FAERS Safety Report 6188761-5 (Version None)
Quarter: 2009Q2

REPORT INFORMATION
  Report Type: 
  Country: None (occurrence: None)
  Receive Date: 20090511
  Receipt Date: 20090511
  Transmission Date: 20091009
  Serious: No
  Sender: FDA-Public Use
  Company Number: None

PATIENT
  Age: 25 Year
  Sex: Female
  Weight: 88.4514 kg

DRUGS (1)
  1. LUPRON DEPOT [Suspect]
     Indication: ENDOMETRIOSIS
     Dosage: 7.5 ONCE A MONTH IM
     Route: 030
     Dates: start: 20080301, end: 20080915

REACTIONS (15)
  - ARTHRALGIA [None]
  - ARTHRITIS [None]
  - ASTHENIA [None]
  - BLEPHAROSPASM [None]
  - DRUG INEFFECTIVE [None]
  - GLAUCOMA [None]
  - INFLUENZA [None]
  - JOINT CREPITATION [None]
  - LYMPH NODE PAIN [None]
  - LYMPHADENOPATHY [None]
  - MYALGIA [None]
  - MYODESOPSIA [None]
  - POISONING [None]
  - URTICARIA [None]
  - VISION BLURRED [None]
